FAERS Safety Report 18960513 (Version 2)
Quarter: 2021Q1

REPORT INFORMATION
  Report Type: Spontaneous
  Country: FR (occurrence: FR)
  Receive Date: 20210302
  Receipt Date: 20210326
  Transmission Date: 20210420
  Serious: Yes (Other)
  Sender: FDA-Public Use
  Company Number: FR-PFIZER INC-2021189337

PATIENT
  Age: 71 Year
  Sex: Female
  Weight: 45 kg

DRUGS (16)
  1. VALACICLOVIR HYDROCHLORIDE [Suspect]
     Active Substance: VALACYCLOVIR HYDROCHLORIDE
     Indication: ANTIVIRAL PROPHYLAXIS
     Dosage: 1000 MG, 1X/DAY
     Route: 048
  2. LAROXYL [Suspect]
     Active Substance: AMITRIPTYLINE HYDROCHLORIDE
     Indication: OCCIPITAL NEURALGIA
     Dosage: 10 DROP, 1X/DAY (40 MG/ML)
     Route: 048
  3. DOXORUBICIN HCL [Suspect]
     Active Substance: DOXORUBICIN HYDROCHLORIDE
     Indication: B-CELL LYMPHOMA
     Dosage: 70 MG, EVERY 3 WEEKS
     Route: 042
     Dates: start: 20201216
  4. ZOPHREN [ONDANSETRON HYDROCHLORIDE] [Suspect]
     Active Substance: ONDANSETRON
     Indication: NAUSEA
     Dosage: 4 DF, CYCLIC
     Route: 048
     Dates: start: 20201211
  5. METHOTREXATE. [Suspect]
     Active Substance: METHOTREXATE
     Indication: B-CELL LYMPHOMA
     Dosage: 15 MG, SINGLE
     Route: 037
     Dates: start: 20201216, end: 20201216
  6. CYTARABINE. [Suspect]
     Active Substance: CYTARABINE
     Indication: B-CELL LYMPHOMA
     Dosage: 30 MG, SINGLE
     Route: 037
     Dates: start: 20201216, end: 20201216
  7. RITUXIMAB. [Suspect]
     Active Substance: RITUXIMAB
     Indication: PRIMARY MEDIASTINAL LARGE B-CELL LYMPHOMA
     Dosage: 500 MG, EVERY 3 WEEKS
     Route: 042
     Dates: start: 20201214
  8. METHYLPREDNISOLONE SODIUM SUCCINATE. [Suspect]
     Active Substance: METHYLPREDNISOLONE SODIUM SUCCINATE
     Indication: B-CELL LYMPHOMA
     Dosage: 40 MG, SINGLE
     Route: 037
     Dates: start: 20201216, end: 20201216
  9. CYCLOPHOSPHAMIDE. [Suspect]
     Active Substance: CYCLOPHOSPHAMIDE
     Indication: B-CELL LYMPHOMA
     Dosage: 1070 MG, CYCLIC EVERY 3 WEEKS
     Route: 042
     Dates: start: 20201211
  10. RETACRIT [Suspect]
     Active Substance: EPOETIN ALFA-EPBX
     Indication: ANAEMIA
     Dosage: 1 DF, WEEKLY (30000 IU/0.75 ML)
     Route: 058
     Dates: start: 20201218
  11. ZARZIO [Suspect]
     Active Substance: FILGRASTIM
     Dosage: 5 DF, CYCLIC
     Route: 058
     Dates: start: 20201216
  12. ALLOPURINOL. [Suspect]
     Active Substance: ALLOPURINOL
     Indication: GOUT
     Dosage: 300 MG, 1X/DAY
     Route: 048
     Dates: start: 20201203
  13. METHOTREXATE. [Suspect]
     Active Substance: METHOTREXATE
     Indication: B-CELL LYMPHOMA
     Dosage: 2090 MG, EVERY 3 WEEKS
     Route: 042
     Dates: start: 20210106
  14. WELLVONE [Suspect]
     Active Substance: ATOVAQUONE
     Indication: ANTIFUNGAL PROPHYLAXIS
     Dosage: 1500 MG, 1X/DAY (750 MG/5 ML)
     Route: 048
  15. VINCRISTINE SULFATE. [Suspect]
     Active Substance: VINCRISTINE SULFATE
     Indication: B-CELL LYMPHOMA
     Dosage: 2 MG, EVERY 3 WEEKS
     Route: 042
     Dates: start: 20201211
  16. PREDNISOLONE. [Suspect]
     Active Substance: PREDNISOLONE
     Indication: B-CELL LYMPHOMA
     Dosage: 360 MG, CYCLIC EVERY 21 DAYS
     Route: 048
     Dates: start: 20201211

REACTIONS (1)
  - Cerebellar stroke [Not Recovered/Not Resolved]

NARRATIVE: CASE EVENT DATE: 20210128
